FAERS Safety Report 9730433 (Version 2)
Quarter: 2013Q4

REPORT INFORMATION
  Report Type: Spontaneous
  Country: US (occurrence: US)
  Receive Date: 20131202
  Receipt Date: 20131216
  Transmission Date: 20140711
  Serious: Yes (Other)
  Sender: FDA-Public Use
  Company Number: US-BAYER-2013-146861

PATIENT
  Age: 59 Year
  Sex: Male
  Weight: 86 kg

DRUGS (13)
  1. XARELTO [Suspect]
     Indication: CEREBROVASCULAR ACCIDENT PROPHYLAXIS
     Dosage: 20 MG, UNK
     Route: 048
     Dates: start: 20130110
  2. XARELTO [Interacting]
     Indication: ATRIAL FIBRILLATION
  3. PLAVIX [Suspect]
     Indication: PERIPHERAL VASCULAR DISORDER
     Dosage: 75 MG, QD
     Route: 048
     Dates: start: 20130110
  4. PLAVIX [Suspect]
     Indication: CORONARY ARTERY DISEASE
  5. ACETYLSALICYLIC ACID({=100 MG) [Interacting]
     Indication: PERIPHERAL VASCULAR DISORDER
     Dosage: 81 MG, QD
     Route: 048
  6. DILTIAZEM [Concomitant]
     Indication: ARRHYTHMIA PROPHYLAXIS
     Dosage: 180 MG, QD
     Route: 048
     Dates: start: 20130110
  7. ALLOPURINOL [Concomitant]
     Dosage: 300 MG, QD
     Route: 048
  8. LIPITOR [Concomitant]
     Dosage: 20 MG, QD
     Route: 048
  9. COLCHICINE [Concomitant]
     Dosage: .6 MG, QD
     Route: 048
  10. GLIPIZIDE [Concomitant]
     Dosage: 5 MG, BID
     Route: 048
  11. LISINOPRIL [Concomitant]
     Dosage: 5 MG, BID
     Route: 048
  12. MULTAQ [Concomitant]
     Dosage: 400 MG, BID
     Route: 048
  13. AMBIEN [Concomitant]
     Indication: INSOMNIA
     Dosage: 5 MG, UNK
     Route: 048

REACTIONS (2)
  - Haematochezia [Recovered/Resolved]
  - Epistaxis [Recovered/Resolved]
